FAERS Safety Report 25632076 (Version 1)
Quarter: 2025Q3

REPORT INFORMATION
  Report Type: Spontaneous
  Country: US (occurrence: None)
  Receive Date: 20250731
  Receipt Date: 20250731
  Transmission Date: 20251021
  Serious: Yes (Other)
  Sender: FDA-CTU
  Company Number: None

PATIENT
  Age: 52 Year

DRUGS (1)
  1. AUSTEDO [Suspect]
     Active Substance: DEUTETRABENAZINE
     Indication: Huntington^s disease
     Dosage: FREQUENCY : TWICE A DAY;?
     Route: 048
     Dates: start: 20250626, end: 20250731

REACTIONS (4)
  - Headache [None]
  - Nausea [None]
  - Pyrexia [None]
  - Therapy cessation [None]

NARRATIVE: CASE EVENT DATE: 20250731
